FAERS Safety Report 8215634-6 (Version None)
Quarter: 2012Q1

REPORT INFORMATION
  Report Type: 
  Country: None (occurrence: None)
  Receive Date: 20120316
  Receipt Date: 20120314
  Transmission Date: 20120608
  Serious: Yes (Hospitalization)
  Sender: FDA-Public Use
  Company Number: SI-ROCHE-1048800

PATIENT
  Sex: Female

DRUGS (1)
  1. XELODA [Suspect]
     Indication: COLON CANCER
     Dosage: 2X5 TBL. PER WEEK, FILM-COATED TABLET
     Route: 048
     Dates: start: 20120116

REACTIONS (6)
  - EYE IRRITATION [None]
  - PAIN IN EXTREMITY [None]
  - PRURITUS [None]
  - OEDEMA PERIPHERAL [None]
  - MUSCULOSKELETAL STIFFNESS [None]
  - ENTEROCOLITIS [None]
